FAERS Safety Report 20163331 (Version 2)
Quarter: 2022Q3

REPORT INFORMATION
  Report Type: Spontaneous
  Country: JP (occurrence: JP)
  Receive Date: 20211209
  Receipt Date: 20220926
  Transmission Date: 20221027
  Serious: Yes (Hospitalization, Other)
  Sender: FDA-Public Use
  Company Number: JP-IPCA LABORATORIES LIMITED-IPC-2021-JP-002004

PATIENT

DRUGS (1)
  1. METFORMIN [Suspect]
     Active Substance: METFORMIN HYDROCHLORIDE
     Indication: Product used for unknown indication
     Dosage: UNK
     Route: 065

REACTIONS (8)
  - Metabolic acidosis [Recovering/Resolving]
  - Encephalopathy [Recovering/Resolving]
  - Diabetic nephropathy [Recovering/Resolving]
  - Gait disturbance [Recovering/Resolving]
  - Altered state of consciousness [Recovering/Resolving]
  - Dysarthria [Recovering/Resolving]
  - Azotaemia [Recovering/Resolving]
  - Magnetic resonance imaging head abnormal [Recovering/Resolving]
